FAERS Safety Report 7819647-5 (Version None)
Quarter: 2011Q4

REPORT INFORMATION
  Report Type: 
  Country: None (occurrence: None)
  Receive Date: 20111018
  Receipt Date: 20111004
  Transmission Date: 20120403
  Serious: Yes (Other)
  Sender: FDA-Public Use
  Company Number: CA-MYLANLABS-2011S1021038

PATIENT
  Age: 38 Year
  Sex: Male

DRUGS (1)
  1. VALPROIC ACID [Suspect]
     Route: 065

REACTIONS (2)
  - LOSS OF CONSCIOUSNESS [None]
  - FALSE POSITIVE INVESTIGATION RESULT [None]
